FAERS Safety Report 9419404 (Version 1)
Quarter: 2013Q3

REPORT INFORMATION
  Report Type: Spontaneous
  Country: CA (occurrence: CA)
  Receive Date: 20130725
  Receipt Date: 20130725
  Transmission Date: 20140515
  Serious: Yes (Death, Hospitalization, Other)
  Sender: FDA-Public Use
  Company Number: CA-CELGENEUS-028-20785-13072329

PATIENT
  Sex: 0

DRUGS (7)
  1. THALOMID [Suspect]
     Indication: PLASMA CELL MYELOMA
     Dosage: 50-200MG
     Route: 048
  2. THALOMID [Suspect]
     Dosage: 100-400MG
     Route: 048
  3. DEXAMETHASONE [Suspect]
     Indication: PLASMA CELL MYELOMA
     Dosage: 40 MILLIGRAM
     Route: 048
  4. CISPLATIN [Suspect]
     Indication: PLASMA CELL MYELOMA
     Route: 065
  5. DOXORUBICIN [Suspect]
     Indication: PLASMA CELL MYELOMA
     Route: 065
  6. CYCLOPHOSPHAMIDE [Suspect]
     Indication: PLASMA CELL MYELOMA
     Route: 065
  7. ETOPOSIDE [Suspect]
     Indication: PLASMA CELL MYELOMA
     Route: 065

REACTIONS (50)
  - Upper gastrointestinal haemorrhage [Fatal]
  - Neutropenic sepsis [Fatal]
  - Pneumonia [Fatal]
  - Pulmonary embolism [Fatal]
  - Conjunctival haemorrhage [Unknown]
  - Pneumonitis [Unknown]
  - Mucosal inflammation [Unknown]
  - Hypophosphataemia [Unknown]
  - Hyperbilirubinaemia [Unknown]
  - Mouth haemorrhage [Unknown]
  - Hyponatraemia [Unknown]
  - Hyperkalaemia [Unknown]
  - Hypokalaemia [Unknown]
  - Hypomagnesaemia [Unknown]
  - Haematuria [Unknown]
  - Hyperglycaemia [Unknown]
  - Epistaxis [Unknown]
  - Rectal haemorrhage [Unknown]
  - Catheter site haemorrhage [Unknown]
  - Peripheral sensory neuropathy [Unknown]
  - Diarrhoea [Unknown]
  - Hepatic enzyme increased [Unknown]
  - Cardiac failure congestive [Unknown]
  - Neutropenic infection [Unknown]
  - Hepatosplenic candidiasis [Unknown]
  - Renal failure [Unknown]
  - Pyrexia [Unknown]
  - Vomiting [Unknown]
  - Neutropenia [Unknown]
  - Nausea [Unknown]
  - Anaemia [Unknown]
  - Febrile neutropenia [Unknown]
  - Thrombocytopenia [Unknown]
  - Skin infection [Unknown]
  - Rash [Unknown]
  - Hypocalcaemia [Unknown]
  - Herpes simplex [Unknown]
  - Thrombosis in device [Unknown]
  - Sepsis [Unknown]
  - Bacterial sepsis [Unknown]
  - Bacterial sepsis [Unknown]
  - Failure to thrive [Unknown]
  - Pain [Unknown]
  - Supraventricular tachycardia [Unknown]
  - Cough [Unknown]
  - Plasma cell myeloma [Unknown]
  - Respiratory tract infection [Unknown]
  - Constipation [Unknown]
  - Fatigue [Unknown]
  - Skin infection [Unknown]
